FAERS Safety Report 16042801 (Version 1)
Quarter: 2019Q2

REPORT INFORMATION
  Report Type: Spontaneous
  Country: US (occurrence: US)
  Receive Date: 20190306
  Receipt Date: 20190306
  Transmission Date: 20190711
  Serious: No
  Sender: FDA-Public Use
  Company Number: None

PATIENT

DRUGS (2)
  1. FLEXERIL [Suspect]
     Active Substance: CYCLOBENZAPRINE HYDROCHLORIDE
  2. METHOCARBAMOL. [Suspect]
     Active Substance: METHOCARBAMOL

REACTIONS (4)
  - Muscle spasms [None]
  - Nausea [None]
  - Abdominal pain [None]
  - Drug hypersensitivity [None]
